FAERS Safety Report 4695753-1 (Version None)
Quarter: 2005Q2

REPORT INFORMATION
  Report Type: 
  Country: None (occurrence: None)
  Receive Date: 20050621
  Receipt Date: 20050531
  Transmission Date: 20051028
  Serious: Yes (Hospitalization)
  Sender: FDA-Public Use
  Company Number: JP-BRISTOL-MYERS SQUIBB COMPANY-12996633

PATIENT
  Age: 88 Year
  Sex: Male

DRUGS (4)
  1. GATIFLO TABS 100 MG [Suspect]
     Indication: UPPER RESPIRATORY TRACT INFLAMMATION
     Route: 048
     Dates: start: 20050429, end: 20050502
  2. HALFDIGOXIN [Concomitant]
     Route: 048
  3. LASIX [Concomitant]
     Route: 048
  4. ITOROL [Concomitant]
     Route: 048

REACTIONS (3)
  - BLOOD BILIRUBIN INCREASED [None]
  - LIVER DISORDER [None]
  - TRANSAMINASES INCREASED [None]
